FAERS Safety Report 6346727-6 (Version None)
Quarter: 2009Q3

REPORT INFORMATION
  Report Type: 
  Country: None (occurrence: None)
  Receive Date: 20090904
  Receipt Date: 20090827
  Transmission Date: 20100115
  Serious: Yes (Hospitalization)
  Sender: FDA-Public Use
  Company Number: 2009JP002815

PATIENT
  Age: 58 Year
  Sex: Male
  Weight: 67.3 kg

DRUGS (25)
  1. TACROLIMUS [Suspect]
     Indication: LIVER TRANSPLANT
     Dosage: SEE IMAGE
     Route: 048
     Dates: start: 20080812, end: 20080812
  2. TACROLIMUS [Suspect]
     Indication: LIVER TRANSPLANT
     Dosage: SEE IMAGE
     Route: 048
     Dates: start: 20080813, end: 20080813
  3. TACROLIMUS [Suspect]
     Indication: LIVER TRANSPLANT
     Dosage: SEE IMAGE
     Route: 048
     Dates: start: 20080814, end: 20080814
  4. TACROLIMUS [Suspect]
     Indication: LIVER TRANSPLANT
     Dosage: SEE IMAGE
     Route: 048
     Dates: start: 20080815, end: 20080819
  5. TACROLIMUS [Suspect]
     Indication: LIVER TRANSPLANT
     Dosage: SEE IMAGE
     Route: 048
     Dates: start: 20080820, end: 20080820
  6. TACROLIMUS [Suspect]
     Indication: LIVER TRANSPLANT
     Dosage: SEE IMAGE
     Route: 048
     Dates: start: 20080821, end: 20080821
  7. TACROLIMUS [Suspect]
     Indication: LIVER TRANSPLANT
     Dosage: SEE IMAGE
     Route: 048
     Dates: start: 20080822, end: 20080822
  8. TACROLIMUS [Suspect]
     Indication: LIVER TRANSPLANT
     Dosage: SEE IMAGE
     Route: 048
     Dates: start: 20080823, end: 20080823
  9. TACROLIMUS [Suspect]
     Indication: LIVER TRANSPLANT
     Dosage: SEE IMAGE
     Route: 048
     Dates: start: 20080829, end: 20080829
  10. TACROLIMUS [Suspect]
     Indication: LIVER TRANSPLANT
     Dosage: SEE IMAGE
     Route: 048
     Dates: start: 20080830, end: 20080912
  11. TACROLIMUS [Suspect]
     Indication: LIVER TRANSPLANT
     Dosage: SEE IMAGE
     Route: 048
     Dates: start: 20080913, end: 20080913
  12. TACROLIMUS [Suspect]
     Indication: LIVER TRANSPLANT
     Dosage: SEE IMAGE
     Route: 048
     Dates: start: 20080914, end: 20080914
  13. TACROLIMUS [Suspect]
     Indication: LIVER TRANSPLANT
     Dosage: SEE IMAGE
     Route: 048
     Dates: start: 20080915, end: 20080922
  14. TACROLIMUS [Suspect]
     Indication: LIVER TRANSPLANT
     Dosage: SEE IMAGE
     Route: 048
     Dates: start: 20080923, end: 20080923
  15. TACROLIMUS [Suspect]
     Indication: LIVER TRANSPLANT
     Dosage: SEE IMAGE
     Route: 048
     Dates: start: 20080924, end: 20080924
  16. TACROLIMUS [Suspect]
     Indication: LIVER TRANSPLANT
     Dosage: SEE IMAGE
     Route: 048
     Dates: start: 20081021, end: 20081021
  17. TACROLIMUS [Suspect]
     Indication: LIVER TRANSPLANT
     Dosage: SEE IMAGE
     Route: 048
     Dates: start: 20081022, end: 20090302
  18. TACROLIMUS [Suspect]
     Indication: LIVER TRANSPLANT
     Dosage: SEE IMAGE
     Route: 048
     Dates: start: 20090303, end: 20090303
  19. TACROLIMUS [Suspect]
     Indication: LIVER TRANSPLANT
     Dosage: SEE IMAGE
     Route: 048
     Dates: start: 20090304, end: 20090330
  20. TACROLIMUS [Suspect]
     Indication: LIVER TRANSPLANT
     Dosage: SEE IMAGE
     Route: 048
     Dates: start: 20090331
  21. CELLCEPT [Concomitant]
  22. PROHEPARUM (CYSTEINE, INOSITOL, CHOLINE BITARTRATE, LIVER HYDROLYSATE) [Concomitant]
  23. URSO 250 [Concomitant]
  24. LAMIVUDINE [Concomitant]
  25. AMARYL [Concomitant]

REACTIONS (4)
  - ENTEROBACTER INFECTION [None]
  - HYPERSPLENISM [None]
  - KLEBSIELLA INFECTION [None]
  - PYREXIA [None]
